FAERS Safety Report 23560845 (Version 1)
Quarter: 2024Q1

REPORT INFORMATION
  Report Type: Spontaneous
  Country: US (occurrence: None)
  Receive Date: 20240223
  Receipt Date: 20240223
  Transmission Date: 20240410
  Serious: Yes (Other)
  Sender: FDA-Public Use
  Company Number: None

PATIENT
  Age: 51 Year
  Sex: Male

DRUGS (2)
  1. LINEZOLID [Suspect]
     Active Substance: LINEZOLID
     Dosage: FREQUENCY : TWICE A DAY;?
     Route: 048
     Dates: start: 20240130, end: 20240208
  2. ESCITALOPRAM [Suspect]
     Active Substance: ESCITALOPRAM OXALATE
     Dosage: FREQUENCY : DAILY;?
     Route: 048
     Dates: start: 20240210

REACTIONS (3)
  - Heart rate increased [None]
  - Hyperhidrosis [None]
  - Muscle spasms [None]

NARRATIVE: CASE EVENT DATE: 20240222
